FAERS Safety Report 8133445-7 (Version None)
Quarter: 2012Q1

REPORT INFORMATION
  Report Type: 
  Country: None (occurrence: None)
  Receive Date: 20120213
  Receipt Date: 20120202
  Transmission Date: 20120608
  Serious: Yes (Hospitalization)
  Sender: FDA-Public Use
  Company Number: US-JNJFOC-20111012546

PATIENT
  Sex: Female
  Weight: 31.8 kg

DRUGS (4)
  1. ALBUTEROL [Concomitant]
  2. OMEPRAZOLE [Concomitant]
  3. INFLIXIMAB, RECOMBINANT [Suspect]
     Indication: INFLAMMATORY BOWEL DISEASE
     Route: 042
     Dates: start: 20110601
  4. PREDNISONE TAB [Concomitant]

REACTIONS (2)
  - ABDOMINAL PAIN [None]
  - HYPOXIA [None]
